FAERS Safety Report 12436956 (Version 2)
Quarter: 2016Q3

REPORT INFORMATION
  Report Type: Spontaneous
  Country: JP (occurrence: JP)
  Receive Date: 20160606
  Receipt Date: 20160718
  Transmission Date: 20161109
  Serious: Yes (Other)
  Sender: FDA-Public Use
  Company Number: PHJP2016JP014776

PATIENT
  Age: 88 Year
  Sex: Female
  Weight: 41 kg

DRUGS (3)
  1. EXELON [Suspect]
     Active Substance: RIVASTIGMINE TARTRATE
     Dosage: 18 MG (PATCH 10 (CM2)/ 9.5 MG/24H), QD
     Route: 062
     Dates: start: 20160311, end: 20160321
  2. EXELON [Suspect]
     Active Substance: RIVASTIGMINE TARTRATE
     Indication: DEMENTIA ALZHEIMER^S TYPE
     Dosage: 9 MG (PATCH 5 (CM2/4.6 MG/24H), QD
     Route: 062
  3. EXELON [Suspect]
     Active Substance: RIVASTIGMINE TARTRATE
     Dosage: 9 MG (PATCH 5, 4.6 MG/24H)
     Route: 062
     Dates: start: 20160330

REACTIONS (3)
  - Abnormal behaviour [Recovering/Resolving]
  - Dementia Alzheimer^s type [Recovering/Resolving]
  - Irritability [Recovered/Resolved]

NARRATIVE: CASE EVENT DATE: 20160320
